FAERS Safety Report 8809064 (Version 2)
Quarter: 2013Q1

REPORT INFORMATION
  Report Type: Spontaneous
  Country: US (occurrence: US)
  Receive Date: 20120926
  Receipt Date: 20130117
  Transmission Date: 20140127
  Serious: Yes (Hospitalization, Other)
  Sender: FDA-Public Use
  Company Number: US-GILEAD-2012-0061720

PATIENT
  Age: 65 None
  Sex: Female

DRUGS (2)
  1. LETAIRIS [Suspect]
     Indication: PULMONARY HYPERTENSION
     Dosage: 10 MG, UNK
     Route: 048
     Dates: start: 20110507
  2. LETAIRIS [Suspect]
     Indication: CREST SYNDROME

REACTIONS (6)
  - Surgery [Unknown]
  - Wrist fracture [Unknown]
  - Fall [Unknown]
  - Arthritis [Unknown]
  - Impaired healing [Unknown]
  - Pain [Unknown]
